FAERS Safety Report 4462430-1 (Version None)
Quarter: 2004Q3

REPORT INFORMATION
  Report Type: 
  Country: None (occurrence: None)
  Receive Date: 20040924
  Receipt Date: 20040824
  Transmission Date: 20050211
  Serious: Yes (Other)
  Sender: FDA-Public Use
  Company Number: 2004-BP-07284AU

PATIENT
  Age: 63 Year
  Sex: Female

DRUGS (1)
  1. MOBIC [Suspect]
     Route: 048

REACTIONS (3)
  - CIRCULATORY COLLAPSE [None]
  - HYPOVENTILATION [None]
  - LOSS OF CONSCIOUSNESS [None]
